FAERS Safety Report 8485909 (Version 3)
Quarter: 2013Q2

REPORT INFORMATION
  Report Type: Report from Study
  Country: TW (occurrence: TW)
  Receive Date: 20120330
  Receipt Date: 20130412
  Transmission Date: 20140414
  Serious: Yes (Other)
  Sender: FDA-Public Use
  Company Number: PHHO2011TW021885

PATIENT
  Age: 35 Year
  Sex: Female
  Weight: 50 kg

DRUGS (7)
  1. TELBIVUDINE [Suspect]
     Indication: CHRONIC HEPATITIS B
     Dosage: 1 DF, QD
     Route: 048
     Dates: start: 20101028
  2. SILYMARIN [Concomitant]
     Indication: HEPATITIS CHRONIC ACTIVE
     Dosage: 2 DF, TID
     Route: 048
     Dates: start: 20100716, end: 20110316
  3. CLOMIPHENE [Concomitant]
     Indication: OVULATION DISORDER
     Dosage: 300 MG, QD
     Route: 048
     Dates: start: 20110422, end: 20110426
  4. CEFADROXIL [Concomitant]
     Indication: BACTERIAL INFECTION
     Dosage: 3 DF, Q12H
     Route: 048
     Dates: start: 20111214, end: 20111215
  5. DIALICOR [Concomitant]
     Indication: DECREASED APPETITE
     Dosage: 2 DF, TID
     Route: 048
     Dates: start: 20120308, end: 20120405
  6. FERROUS GLUCO-B [Concomitant]
     Indication: IRON DEFICIENCY ANAEMIA
     Dosage: 1 DF, QD
     Route: 048
     Dates: start: 20120318, end: 20120511
  7. CALHO [Concomitant]
     Indication: TETANY
     Dosage: 1 DF, QD
     Route: 048
     Dates: start: 20120318, end: 20120511

REACTIONS (4)
  - Haemorrhage in pregnancy [Unknown]
  - Exposure during pregnancy [Unknown]
  - Delivery [Unknown]
  - Normal newborn [Unknown]
